FAERS Safety Report 5556766-0 (Version None)
Quarter: 2007Q4

REPORT INFORMATION
  Report Type: 
  Country: None (occurrence: None)
  Receive Date: 20071130
  Receipt Date: 20070724
  Transmission Date: 20080405
  Serious: No
  Sender: FDA-Public Use
  Company Number: 2006PV026584

PATIENT
  Age: 67 Year
  Sex: Female
  Weight: 86.2 kg

DRUGS (9)
  1. EXENATIDE(EXENATIDE) PEN,DISPOSABLE [Suspect]
     Indication: TYPE 2 DIABETES MELLITUS
     Dosage: 5 UG, 2/D, SUBCUTANEOUS; 10 UG, 2/D, SUBCUTANEOUS
     Route: 058
     Dates: start: 20061101, end: 20061130
  2. EXENATIDE(EXENATIDE) PEN,DISPOSABLE [Suspect]
     Indication: TYPE 2 DIABETES MELLITUS
     Dosage: 5 UG, 2/D, SUBCUTANEOUS; 10 UG, 2/D, SUBCUTANEOUS
     Route: 058
     Dates: start: 20060101
  3. EXENATIDE(EXENATIDE) PEN,DISPOSABLE [Suspect]
     Indication: TYPE 2 DIABETES MELLITUS
     Dosage: 5 UG, 2/D, SUBCUTANEOUS; 10 UG, 2/D, SUBCUTANEOUS
     Route: 058
     Dates: start: 20061201
  4. EXENATIDE(EXENATIDE) PEN,DISPOSABLE [Suspect]
  5. METFORMIN HCL [Concomitant]
  6. GLUCOTROL [Concomitant]
  7. GEMFIBROZIL [Concomitant]
  8. LEVOTHYROXINE SODIUM [Concomitant]
  9. REGLAN [Concomitant]

REACTIONS (5)
  - BREATH ODOUR [None]
  - CONSTIPATION [None]
  - DENTAL CARIES [None]
  - DYSGEUSIA [None]
  - URINE ODOUR ABNORMAL [None]
